FAERS Safety Report 10265559 (Version 1)
Quarter: 2014Q2

REPORT INFORMATION
  Report Type: Spontaneous
  Country: US (occurrence: US)
  Receive Date: 20140627
  Receipt Date: 20140627
  Transmission Date: 20141212
  Serious: Yes (Death)
  Sender: FDA-Public Use
  Company Number: US-UCBSA-2014003172

PATIENT
  Age: 84 Year
  Sex: Female

DRUGS (8)
  1. LEVETIRACETAM [Suspect]
  2. VIMPAT [Suspect]
  3. LORAZEPAM [Concomitant]
     Dosage: 3 MG
     Route: 042
  4. OLANZAPINE [Concomitant]
     Dosage: 10 MG
     Route: 048
  5. CITALOPRAM [Concomitant]
     Dosage: UNK
  6. MEMANTINE [Concomitant]
     Dosage: 10 MG, 2X/DAY (BID)
  7. POLYETHYLENE GLYCOL 3350 [Concomitant]
  8. CLONAZEPAM [Suspect]

REACTIONS (2)
  - Death [Fatal]
  - Drug ineffective [Unknown]
